FAERS Safety Report 21869875 (Version 4)
Quarter: 2023Q1

REPORT INFORMATION
  Report Type: Report from Study
  Country: US (occurrence: None)
  Receive Date: 20230117
  Receipt Date: 20230228
  Transmission Date: 20230418
  Serious: Yes (Other)
  Sender: FDA-Public Use
  Company Number: US-ROCHE-3260624

PATIENT
  Age: 53 Year
  Sex: Female
  Weight: 95 kg

DRUGS (19)
  1. RANIBIZUMAB [Suspect]
     Active Substance: RANIBIZUMAB
     Indication: Diabetic retinopathy
     Dosage: DOSE OF STUDY DRUG FIRST ADMINISTERED: 10 MG/ML, FREQUENCY OF THE IMPLANT: Q36W (AS PER PROTOCOL)
     Route: 050
     Dates: start: 20210719
  2. RANIBIZUMAB [Suspect]
     Active Substance: RANIBIZUMAB
  3. RANIBIZUMAB [Suspect]
     Active Substance: RANIBIZUMAB
  4. RANIBIZUMAB [Suspect]
     Active Substance: RANIBIZUMAB
  5. RANIBIZUMAB [Suspect]
     Active Substance: RANIBIZUMAB
  6. RANIBIZUMAB [Concomitant]
     Active Substance: RANIBIZUMAB
     Dosage: DOSE OF STUDY DRUG FIRST ADMINISTERED: 6 MG/ML
     Route: 050
     Dates: start: 20210719
  7. METFORMIN [Concomitant]
     Active Substance: METFORMIN HYDROCHLORIDE
     Indication: Diabetes mellitus
     Dates: start: 2019
  8. JANUVIA [Concomitant]
     Active Substance: SITAGLIPTIN PHOSPHATE
     Indication: Diabetes mellitus
     Dates: start: 2019, end: 20230124
  9. TYLENOL [Concomitant]
     Active Substance: ACETAMINOPHEN
     Dates: start: 2019
  10. IMODIUM [Concomitant]
     Active Substance: LOPERAMIDE HYDROCHLORIDE
     Indication: Abdominal discomfort
     Dates: start: 2019
  11. MONISTAT [Concomitant]
     Active Substance: MICONAZOLE NITRATE
     Indication: Fungal infection
     Dates: start: 2000
  12. FENOFIBRATE [Concomitant]
     Active Substance: FENOFIBRATE
     Indication: Hyperlipidaemia
     Dates: start: 20210712
  13. TOBRAMYCIN [Concomitant]
     Active Substance: TOBRAMYCIN
     Dates: start: 20230105, end: 20230108
  14. ROSUVASTATIN [Concomitant]
     Active Substance: ROSUVASTATIN
     Indication: Diabetes mellitus
     Dates: start: 20230125
  15. GLIPIZIDE [Concomitant]
     Active Substance: GLIPIZIDE
     Indication: Diabetes mellitus
     Dates: start: 20230125
  16. NITROFURANTOIN [Concomitant]
     Active Substance: NITROFURANTOIN
     Indication: Vulvovaginal mycotic infection
     Dates: start: 20230123, end: 20230131
  17. ACETAMINOPHEN\HYDROCODONE [Concomitant]
     Active Substance: ACETAMINOPHEN\HYDROCODONE
     Dates: start: 20230223
  18. GABAPENTIN [Concomitant]
     Active Substance: GABAPENTIN
     Dates: start: 20230223
  19. MELOXICAM [Concomitant]
     Active Substance: MELOXICAM
     Dates: start: 20230223

REACTIONS (2)
  - Device dislocation [Unknown]
  - No adverse event [Unknown]

NARRATIVE: CASE EVENT DATE: 20230105
